FAERS Safety Report 8794564 (Version 2)
Quarter: 2013Q4

REPORT INFORMATION
  Report Type: Spontaneous
  Country: CH (occurrence: CH)
  Receive Date: 20120917
  Receipt Date: 20131031
  Transmission Date: 20140711
  Serious: Yes (Other)
  Sender: FDA-Public Use
  Company Number: CH-009507513-1209CHE005409

PATIENT
  Age: 60 Year
  Sex: Female

DRUGS (11)
  1. EZETROL [Suspect]
     Dosage: 10 MG, QD
     Route: 048
     Dates: start: 201202, end: 20120705
  2. PROGRAF [Concomitant]
     Dosage: 5 MG, Q12H
     Route: 048
     Dates: start: 201104
  3. CELLCEPT [Concomitant]
     Dosage: 750 MG, Q12H
     Route: 048
     Dates: start: 201104
  4. PREDNISONE [Concomitant]
     Dosage: 5 MG, QD
     Route: 048
     Dates: start: 201104
  5. NEXIUM [Concomitant]
     Dosage: 40 MG, QD
     Route: 048
     Dates: start: 201104
  6. ADALAT [Concomitant]
     Dosage: 60 MG, QD
     Route: 048
     Dates: start: 201104
  7. NEBILET [Concomitant]
     Dosage: 5 MG, QD
     Route: 048
  8. JANUVIA [Concomitant]
     Dosage: 5 MG, QD
     Route: 048
     Dates: start: 201105
  9. DIAMICRON [Concomitant]
     Indication: TYPE 2 DIABETES MELLITUS
     Dosage: 30 MG, BID
     Route: 048
     Dates: start: 20120424
  10. VITAMIN D3 STREULI [Concomitant]
     Dosage: 15 GTT, QD
     Route: 048
  11. PROLIA [Concomitant]
     Dosage: 60 MG, 1 PER 6 MONTH
     Route: 058
     Dates: start: 20111005

REACTIONS (3)
  - Alveolitis allergic [Recovered/Resolved with Sequelae]
  - Dyspnoea [Recovered/Resolved with Sequelae]
  - Cough [Recovered/Resolved with Sequelae]
